FAERS Safety Report 26150412 (Version 1)
Quarter: 2025Q4

REPORT INFORMATION
  Report Type: Spontaneous
  Country: US (occurrence: US)
  Receive Date: 20251212
  Receipt Date: 20251212
  Transmission Date: 20260118
  Serious: No
  Sender: SANOFI AVENTIS
  Company Number: US-SANOFI-02743819

PATIENT
  Sex: Female

DRUGS (1)
  1. DUPIXENT [Suspect]
     Active Substance: DUPILUMAB
     Indication: Asthma
     Dosage: 600 MG, 1X

REACTIONS (6)
  - Abdominal distension [Unknown]
  - Inflammation [Unknown]
  - Swelling [Unknown]
  - Weight increased [Unknown]
  - Injury [Unknown]
  - Oedema [Unknown]
